FAERS Safety Report 5957959-0 (Version None)
Quarter: 2008Q4

REPORT INFORMATION
  Report Type: 
  Country: None (occurrence: None)
  Receive Date: 20081119
  Receipt Date: 20081015
  Transmission Date: 20090506
  Serious: Yes (Other)
  Sender: FDA-Public Use
  Company Number: US-SOLVAY-00208004897

PATIENT
  Age: 896 Month
  Sex: Male
  Weight: 104.32 kg

DRUGS (9)
  1. ANDROGEL [Suspect]
     Indication: BLOOD TESTOSTERONE DECREASED
     Dosage: DAILY DOSE: 10 GRAM(S) VIA PUMP
     Route: 062
     Dates: start: 20060101
  2. ZESTORETIC [Concomitant]
     Indication: CARDIOVASCULAR EVENT PROPHYLAXIS
     Dosage: DAILY DOSE:  10/6.25 MILLIGRAMS ONCE A DAY
     Route: 048
     Dates: start: 19980101
  3. XALATAN [Concomitant]
     Indication: GLAUCOMA
     Dosage: DAILY DOSE:  1 DROP EACH EYE
     Route: 047
     Dates: start: 19930101
  4. ANDRODERM [Suspect]
     Indication: BLOOD TESTOSTERONE DECREASED
     Dosage: DAILY DOSE: 1 DOSAGE FORM
     Route: 061
     Dates: start: 20080501, end: 20080601
  5. ANDRODERM [Suspect]
     Dosage: DAILY DOSE: 1 DOSAGE FORM
     Route: 061
     Dates: start: 20081011, end: 20081012
  6. VYTORIN [Concomitant]
     Indication: BLOOD CHOLESTEROL
     Dosage: DAILY DOSE: 20 MILLIGRAM(S)
     Route: 048
     Dates: start: 20060101
  7. MULTI-VITAMIN [Concomitant]
     Indication: NUTRITIONAL SUPPORT
     Dosage: DAILY DOSE: 1 DOSAGE FORM
     Route: 048
     Dates: start: 19980101
  8. GLUCOSAMINE/CHONDRITIN [Concomitant]
     Indication: NUTRITIONAL SUPPORT
     Dosage: DAILY DOSE: 2 DOSAGE FORM
     Route: 048
     Dates: start: 20020101
  9. NEXIUM [Concomitant]
     Indication: GASTROOESOPHAGEAL REFLUX DISEASE
     Dosage: DAILY DOSE: 40 MILLIGRAM(S)
     Route: 048
     Dates: start: 20060101

REACTIONS (1)
  - IDIOPATHIC THROMBOCYTOPENIC PURPURA [None]
